FAERS Safety Report 5290850-4 (Version None)
Quarter: 2007Q2

REPORT INFORMATION
  Report Type: 
  Country: None (occurrence: None)
  Receive Date: 20070409
  Receipt Date: 20070328
  Transmission Date: 20071010
  Serious: Yes (Death)
  Sender: FDA-Public Use
  Company Number: BR-PFIZER INC-2007025678

PATIENT
  Age: 10 Month
  Sex: Female

DRUGS (1)
  1. SILDENAFIL (PAH) [Suspect]
     Indication: CARDIAC DISORDER
     Route: 048
     Dates: start: 20060101, end: 20070301

REACTIONS (1)
  - CARDIAC OPERATION [None]
